FAERS Safety Report 8770036 (Version 1)
Quarter: 2012Q4

REPORT INFORMATION
  Report Type: 
  Country: US (occurrence: US)
  Receive Date: 20120905
  Receipt Date: 20120905
  Transmission Date: 20130627
  Serious: No
  Sender: FDA-Public Use
  Company Number: US-TEVA-356664USA

PATIENT
  Sex: Male
  Weight: 70.37 kg

DRUGS (2)
  1. PROAIR HFA [Suspect]
     Dates: start: 2009
  2. COMBIVENT [Concomitant]

REACTIONS (3)
  - Dyspnoea [Recovered/Resolved]
  - Palpitations [Not Recovered/Not Resolved]
  - Drug ineffective [Recovered/Resolved]
